FAERS Safety Report 9332756 (Version 1)
Quarter: 2013Q2

REPORT INFORMATION
  Report Type: Spontaneous
  Country: US (occurrence: US)
  Receive Date: 20130606
  Receipt Date: 20130606
  Transmission Date: 20140414
  Serious: No
  Sender: FDA-Public Use
  Company Number: US-PFIZER INC-2013170051

PATIENT
  Age: 21 Year
  Sex: Male
  Weight: 104 kg

DRUGS (3)
  1. PHENYTOIN [Suspect]
     Indication: CONVULSION
     Dosage: 100 MG, 3X/DAY
     Route: 048
  2. PHENYTOIN [Suspect]
     Dosage: 100 MG, 4X/DAY
     Route: 048
  3. LEVETIRACETAM [Concomitant]
     Indication: CONVULSION
     Dosage: 500 MG, UNK

REACTIONS (2)
  - Amnesia [Unknown]
  - Drug ineffective [Unknown]
